FAERS Safety Report 20973574 (Version 2)
Quarter: 2022Q2

REPORT INFORMATION
  Report Type: Other
  Country: US (occurrence: None)
  Receive Date: 20220617
  Receipt Date: 20220620
  Transmission Date: 20220721
  Serious: No
  Sender: FDA-Public Use
  Company Number: US-ROCHE-3119274

PATIENT
  Age: 59 Year
  Sex: Female
  Weight: 68.100 kg

DRUGS (4)
  1. OCREVUS [Suspect]
     Active Substance: OCRELIZUMAB
     Indication: Relapsing-remitting multiple sclerosis
     Dosage: 600 MG INFUSION OVER 3 HRS EVERY 24 WEEKS WITH METHYLPREDNISONE, DIOHENHYDRAMINE, ACETAMINOPHEN AS P
     Route: 042
     Dates: start: 2017
  2. AMANTADINE [Concomitant]
     Active Substance: AMANTADINE
  3. ATENOLOL [Concomitant]
     Active Substance: ATENOLOL
  4. LEVOTHYROXINE [Concomitant]
     Active Substance: LEVOTHYROXINE

REACTIONS (1)
  - COVID-19 [Not Recovered/Not Resolved]

NARRATIVE: CASE EVENT DATE: 20220612
